FAERS Safety Report 10685572 (Version 3)
Quarter: 2015Q2

REPORT INFORMATION
  Report Type: Spontaneous
  Country: US (occurrence: US)
  Receive Date: 20141231
  Receipt Date: 20150612
  Transmission Date: 20150821
  Serious: Yes (Other)
  Sender: FDA-Public Use
  Company Number: US-BAYER-2014-191219

PATIENT
  Age: 30 Year
  Sex: Female
  Weight: 57 kg

DRUGS (11)
  1. PROTONIX [Concomitant]
     Active Substance: PANTOPRAZOLE SODIUM
     Dosage: 40 MG, QD, 1 TABLET
  2. NICODERM CQ [Concomitant]
     Active Substance: NICOTINE
     Dosage: 21MG/24HR ONCE DAILY
  3. MIDAPHARMA [Concomitant]
  4. FLOVENT HFA [Concomitant]
     Active Substance: FLUTICASONE PROPIONATE
     Dosage: 44 MCG, 2 PUFFS BID
  5. ROCEPHIN [Concomitant]
     Active Substance: CEFTRIAXONE SODIUM
  6. MIRENA [Suspect]
     Active Substance: LEVONORGESTREL
     Dosage: 20 MCG/24HR, CONT
     Route: 015
     Dates: start: 20050501, end: 20100323
  7. PRILOSEC [Concomitant]
     Active Substance: OMEPRAZOLE MAGNESIUM
     Dosage: 40 MG, QD, 1 CAPSULE
  8. PROZAC [Concomitant]
     Active Substance: FLUOXETINE HYDROCHLORIDE
     Dosage: 40 MG, QD, 1 CAPSULE
  9. SINGULAIR [Concomitant]
     Active Substance: MONTELUKAST SODIUM
     Dosage: 10 MG, QD, 1 TABLET
  10. ZITHROMAX [Concomitant]
     Active Substance: AZITHROMYCIN DIHYDRATE
  11. ALBUTEROL. [Concomitant]
     Active Substance: ALBUTEROL
     Dosage: 90 MCG, 2 PUFFS QID PRN

REACTIONS (10)
  - Anxiety [None]
  - Device issue [None]
  - Infertility female [None]
  - Emotional distress [None]
  - Device dislocation [None]
  - Injury [None]
  - Menstruation irregular [None]
  - Pain [None]
  - Thrombosis [None]
  - Depression [None]

NARRATIVE: CASE EVENT DATE: 2006
